FAERS Safety Report 8616106-7 (Version None)
Quarter: 2012Q3

REPORT INFORMATION
  Report Type: 
  Country: None (occurrence: None)
  Receive Date: 20120823
  Receipt Date: 20111005
  Transmission Date: 20120928
  Serious: Yes (Hospitalization)
  Sender: FDA-Public Use
  Company Number: TR-ROCHE-1002184

PATIENT
  Sex: Female
  Weight: 108 kg

DRUGS (2)
  1. RITUXIMAB [Suspect]
     Indication: THROMBOTIC THROMBOCYTOPENIC PURPURA
     Route: 042
  2. ORGAMETRIL [Concomitant]

REACTIONS (1)
  - POLYMYOSITIS [None]
